FAERS Safety Report 4519778-1 (Version None)
Quarter: 2004Q4

REPORT INFORMATION
  Report Type: 
  Country: None (occurrence: None)
  Receive Date: 20041201
  Receipt Date: 20041201
  Transmission Date: 20050328
  Serious: Yes (Hospitalization)
  Sender: FDA-Public Use
  Company Number: None

PATIENT
  Age: 74 Year
  Sex: Male
  Weight: 66.6788 kg

DRUGS (14)
  1. GEMCITABINE [Suspect]
     Indication: PANCREATIC CARCINOMA
     Dosage: 1500 MG/M2 IV 150 M [Q 3 WEEKS]
     Route: 042
     Dates: start: 20041101
  2. GEMCITABINE [Suspect]
     Indication: PANCREATIC CARCINOMA
     Dosage: 1500 MG/M2 IV 150 M [Q 3 WEEKS]
     Route: 042
     Dates: start: 20041115
  3. GEMCITABINE [Suspect]
     Indication: PANCREATIC CARCINOMA
     Dosage: 1500 MG/M2 IV 150 M [Q 3 WEEKS]
     Route: 042
     Dates: start: 20041118
  4. VERAPAMIL [Concomitant]
  5. TRICOR [Concomitant]
  6. AVAPRO [Concomitant]
  7. PERCOCET [Concomitant]
  8. MYLANTA [Concomitant]
  9. PRILOSEC [Concomitant]
  10. LIPRAM [Concomitant]
  11. MEGACE [Concomitant]
  12. ZOFRAN [Concomitant]
  13. ALDACTONE [Concomitant]
  14. LASIX [Concomitant]

REACTIONS (4)
  - ASCITES [None]
  - DEEP VEIN THROMBOSIS [None]
  - NEUTROPHIL COUNT DECREASED [None]
  - OEDEMA PERIPHERAL [None]
